FAERS Safety Report 12534829 (Version 1)
Quarter: 2016Q3

REPORT INFORMATION
  Report Type: Report from Study
  Country: US (occurrence: US)
  Receive Date: 20160707
  Receipt Date: 20160707
  Transmission Date: 20161109
  Serious: No
  Sender: FDA-Public Use
  Company Number: US-AMGEN-USASL2016082301

PATIENT
  Age: 59 Year
  Sex: Male

DRUGS (2)
  1. ENBREL [Suspect]
     Active Substance: ETANERCEPT
     Indication: PSORIASIS
     Dosage: UNK UNK, 2 TIMES/WK
     Route: 065
     Dates: start: 2015
  2. OXYCODONE [Concomitant]
     Active Substance: OXYCODONE
     Dosage: UNK

REACTIONS (12)
  - Drug effect incomplete [Unknown]
  - Unevaluable event [Unknown]
  - Back disorder [Not Recovered/Not Resolved]
  - Skin haemorrhage [Recovering/Resolving]
  - Mobility decreased [Unknown]
  - Psoriasis [Unknown]
  - Nasal septum deviation [Unknown]
  - Insomnia [Unknown]
  - Depression [Unknown]
  - Road traffic accident [Unknown]
  - Arthritis [Not Recovered/Not Resolved]
  - Nasal congestion [Unknown]
